FAERS Safety Report 9280380 (Version 2)
Quarter: 2013Q2

REPORT INFORMATION
  Report Type: Spontaneous
  Country: FI (occurrence: None)
  Receive Date: 20130319
  Receipt Date: 20130405
  Transmission Date: 20140414
  Serious: Yes (Other)
  Sender: FDA-Public Use
  Company Number: 220774

PATIENT
  Age: 50 Year
  Sex: Male

DRUGS (1)
  1. DAIVOBET [Suspect]
     Indication: PSORIASIS
     Dates: start: 2007

REACTIONS (2)
  - Cataract [None]
  - Incorrect drug administration duration [None]
